FAERS Safety Report 6064754-3 (Version None)
Quarter: 2009Q1

REPORT INFORMATION
  Report Type: 
  Country: None (occurrence: None)
  Receive Date: 20090204
  Receipt Date: 20081013
  Transmission Date: 20090719
  Serious: No
  Sender: FDA-Public Use
  Company Number: A0751570A

PATIENT
  Age: 68 Year
  Sex: Female

DRUGS (9)
  1. ARIXTRA [Suspect]
     Dosage: 2.5MG PER DAY
     Route: 058
     Dates: start: 20080201
  2. PLAVIX [Concomitant]
  3. LIPITOR [Concomitant]
  4. LEXAPRO [Concomitant]
  5. LEVOTHYROXINE [Concomitant]
  6. OMACOR [Concomitant]
  7. LASIX [Concomitant]
  8. PRILOSEC [Concomitant]
  9. SPIRONOLACTONE [Concomitant]

REACTIONS (2)
  - CONTUSION [None]
  - DISCOMFORT [None]
